FAERS Safety Report 11850382 (Version 2)
Quarter: 2016Q1

REPORT INFORMATION
  Report Type: Spontaneous
  Country: US (occurrence: US)
  Receive Date: 20151218
  Receipt Date: 20160203
  Transmission Date: 20160526
  Serious: No
  Sender: FDA-Public Use
  Company Number: US-JNJFOC-20151200422

PATIENT
  Sex: Male
  Weight: 63.5 kg

DRUGS (10)
  1. TYLENOL WITH CODEINE [Concomitant]
     Active Substance: ACETAMINOPHEN\CODEINE PHOSPHATE
     Indication: PAIN
     Dosage: 3 DAYS
     Route: 065
     Dates: start: 2004
  2. PREDNISONE. [Concomitant]
     Active Substance: PREDNISONE
     Indication: HAIR TRANSPLANT
     Dosage: 1 WEEK
     Route: 065
     Dates: start: 2004
  3. PENICILLIN NOS [Concomitant]
     Active Substance: PENICILLIN
     Indication: HAIR TRANSPLANT
     Route: 065
     Dates: start: 2004
  4. TYLENOL EXTRA STRENGTH [Suspect]
     Active Substance: ACETAMINOPHEN
     Indication: NASOPHARYNGITIS
     Dosage: Q4-6H, FOR 30 YEARS
     Route: 048
  5. TYLENOL EXTRA STRENGTH [Suspect]
     Active Substance: ACETAMINOPHEN
     Indication: TOOTHACHE
     Dosage: Q4-6H, FOR 30 YEARS
     Route: 048
  6. TYLENOL EXTRA STRENGTH [Suspect]
     Active Substance: ACETAMINOPHEN
     Indication: HAIR TRANSPLANT
     Dosage: Q4-6H, FOR 30 YEARS
     Route: 048
  7. TYLENOL EXTRA STRENGTH [Suspect]
     Active Substance: ACETAMINOPHEN
     Indication: PAIN
     Dosage: Q4-6H, FOR 30 YEARS
     Route: 048
  8. TYLENOL EXTRA STRENGTH [Suspect]
     Active Substance: ACETAMINOPHEN
     Indication: NASOPHARYNGITIS
     Dosage: Q4-6H, FOR 30 YEARS
     Route: 048
  9. TYLENOL EXTRA STRENGTH [Suspect]
     Active Substance: ACETAMINOPHEN
     Indication: BACK PAIN
     Dosage: Q4-6H, FOR 30 YEARS
     Route: 048
  10. TYLENOL WITH CODEINE [Concomitant]
     Active Substance: ACETAMINOPHEN\CODEINE PHOSPHATE
     Indication: HAIR TRANSPLANT
     Dosage: 3 DAYS
     Route: 065
     Dates: start: 2004

REACTIONS (3)
  - Product use issue [Recovered/Resolved]
  - Dry mouth [Recovered/Resolved]
  - Off label use [Recovered/Resolved]

NARRATIVE: CASE EVENT DATE: 2004
